FAERS Safety Report 9239878 (Version 6)
Quarter: 2013Q4

REPORT INFORMATION
  Report Type: Spontaneous
  Country: US (occurrence: US)
  Receive Date: 20130418
  Receipt Date: 20131002
  Transmission Date: 20140711
  Serious: Yes (Hospitalization, Other)
  Sender: FDA-Public Use
  Company Number: US-TEVA-398710USA

PATIENT
  Age: 81 Year
  Sex: Male

DRUGS (17)
  1. METOCLOPRAMIDE [Suspect]
     Indication: GASTRIC DISORDER
     Dates: start: 201205
  2. SEROQUEL [Suspect]
  3. LISINOPRIL [Concomitant]
     Dosage: QAM
  4. PRILOSEC [Concomitant]
  5. SIMVASTATIN [Concomitant]
     Dosage: 40 MILLIGRAM DAILY;
  6. TOPROL-XL [Concomitant]
  7. ASPIRIN [Concomitant]
     Dosage: 81 MILLIGRAM DAILY;
  8. OMEPRAZOLE [Concomitant]
     Dosage: 40 MILLIGRAM DAILY;
  9. KADIAN ER [Concomitant]
     Dosage: 60 MILLIGRAM DAILY;
  10. SEROQUEL [Concomitant]
  11. KRISTALOSE [Concomitant]
     Dosage: 40 MILLIGRAM DAILY;
  12. HYDROXYZINE [Concomitant]
  13. VITAMIN D [Concomitant]
     Dosage: 2000 IU (INTERNATIONAL UNIT) DAILY;
  14. CALTRATE WITH D [Concomitant]
     Dosage: 600 MILLIGRAM DAILY;
  15. CENTRUM SILVER [Concomitant]
  16. CARAFATE [Concomitant]
     Dosage: 3 GRAM DAILY;
  17. PHENERGAN [Concomitant]
     Dosage: PRN

REACTIONS (23)
  - Delirium [Recovering/Resolving]
  - Suicidal ideation [Unknown]
  - Choking [Unknown]
  - Aphagia [Unknown]
  - Renal failure [Unknown]
  - Abdominal distension [Recovering/Resolving]
  - Ileus [Recovering/Resolving]
  - Pneumonia [Recovering/Resolving]
  - Muscle twitching [Unknown]
  - Muscle spasms [Unknown]
  - Lack of spontaneous speech [Unknown]
  - Dyskinesia [Unknown]
  - Grunting [Unknown]
  - Tremor [Unknown]
  - Facial spasm [Unknown]
  - Abdominal pain [Recovering/Resolving]
  - Pyrexia [Recovering/Resolving]
  - Weight decreased [Recovering/Resolving]
  - Nausea [Unknown]
  - Vomiting [Recovering/Resolving]
  - Diarrhoea [Unknown]
  - Gastrooesophageal reflux disease [Unknown]
  - Mental status changes [Recovering/Resolving]
